FAERS Safety Report 21703749 (Version 3)
Quarter: 2024Q1

REPORT INFORMATION
  Report Type: Report from Study
  Country: US (occurrence: US)
  Receive Date: 20221209
  Receipt Date: 20240101
  Transmission Date: 20240410
  Serious: Yes (Hospitalization, Other)
  Sender: FDA-Public Use
  Company Number: US-TAKEDA-2022TUS093029

PATIENT
  Age: 68 Year
  Sex: Female

DRUGS (1)
  1. VEDOLIZUMAB [Suspect]
     Active Substance: VEDOLIZUMAB
     Indication: Crohn^s disease
     Dosage: 300 MILLIGRAM
     Route: 042

REACTIONS (5)
  - Cataract [Unknown]
  - Arthritis [Unknown]
  - Abscess intestinal [Unknown]
  - Spondylitis [Unknown]
  - Infection [Unknown]

NARRATIVE: CASE EVENT DATE: 20200801
